FAERS Safety Report 18429630 (Version 2)
Quarter: 2020Q4

REPORT INFORMATION
  Report Type: Spontaneous
  Country: GB (occurrence: GB)
  Receive Date: 20201027
  Receipt Date: 20201031
  Transmission Date: 20210114
  Serious: Yes (Other)
  Sender: FDA-Public Use
  Company Number: GB-AUROBINDO-AUR-APL-2020-053474

PATIENT
  Age: 82 Year
  Sex: Female

DRUGS (2)
  1. DULOXETINE. [Suspect]
     Active Substance: DULOXETINE
     Indication: DEPRESSION
     Dosage: 60 MILLIGRAM, ONCE A DAY
     Route: 048
     Dates: start: 20200721, end: 20200804
  2. VENLAFAXINE [Suspect]
     Active Substance: VENLAFAXINE HYDROCHLORIDE
     Indication: DEPRESSION
     Dosage: 225 MILLIGRAM, ONCE A DAY
     Route: 048
     Dates: start: 20200107, end: 20200721

REACTIONS (7)
  - Mouth ulceration [Unknown]
  - Pharyngeal ulceration [Unknown]
  - Swelling face [Unknown]
  - Loose tooth [Unknown]
  - Tooth loss [Unknown]
  - Stevens-Johnson syndrome [Recovered/Resolved]
  - Mouth swelling [Unknown]
